FAERS Safety Report 7342900-9 (Version None)
Quarter: 2011Q1

REPORT INFORMATION
  Report Type: 
  Country: None (occurrence: None)
  Receive Date: 20110308
  Receipt Date: 20110308
  Transmission Date: 20110831
  Serious: Yes (Other)
  Sender: FDA-Public Use
  Company Number: None

PATIENT
  Age: 46 Year
  Sex: Female
  Weight: 56.6996 kg

DRUGS (1)
  1. VALACYCLOVIR [Suspect]
     Dosage: 500MG ONE DAILY PO
     Route: 048
     Dates: start: 20100601

REACTIONS (2)
  - PRODUCT SUBSTITUTION ISSUE [None]
  - HERPES VIRUS INFECTION [None]
